FAERS Safety Report 5071390-4 (Version None)
Quarter: 2006Q3

REPORT INFORMATION
  Report Type: 
  Country: None (occurrence: None)
  Receive Date: 20060804
  Receipt Date: 20051205
  Transmission Date: 20061208
  Serious: No
  Sender: FDA-Public Use
  Company Number: US-AMGEN-US160183

PATIENT
  Age: 40 Year
  Sex: Male

DRUGS (9)
  1. ARANESP [Suspect]
     Indication: RENAL TRANSPLANT
     Route: 058
     Dates: start: 20030101
  2. CELLCEPT [Concomitant]
     Route: 065
     Dates: start: 20020701
  3. GENGRAF [Concomitant]
     Route: 065
  4. PREDNISONE TAB [Concomitant]
     Route: 065
     Dates: start: 20020701
  5. VALTREX [Concomitant]
     Route: 065
     Dates: start: 20030701
  6. ATENOLOL [Concomitant]
     Route: 065
     Dates: start: 20020701
  7. ASPIRIN [Concomitant]
     Route: 065
     Dates: start: 20020701
  8. ZANTAC [Concomitant]
     Route: 065
     Dates: start: 20020701
  9. DAPSONE [Concomitant]
     Route: 065

REACTIONS (3)
  - FATIGUE [None]
  - NAUSEA [None]
  - VOMITING [None]
